FAERS Safety Report 6588180-3 (Version None)
Quarter: 2010Q1

REPORT INFORMATION
  Report Type: 
  Country: None (occurrence: None)
  Receive Date: 20100218
  Receipt Date: 20091125
  Transmission Date: 20100710
  Serious: No
  Sender: FDA-Public Use
  Company Number: US-ASTRAZENECA-2009SE20104

PATIENT
  Age: 64 Year
  Sex: Female

DRUGS (2)
  1. ACCOLATE [Suspect]
     Indication: ASTHMA
     Route: 048
  2. SIMVASTATIN [Interacting]

REACTIONS (3)
  - DRUG INTERACTION [None]
  - PRODUCT QUALITY ISSUE [None]
  - WITHDRAWAL SYNDROME [None]
